FAERS Safety Report 9661311 (Version 4)
Quarter: 2013Q4

REPORT INFORMATION
  Report Type: Spontaneous
  Country: DE (occurrence: DE)
  Receive Date: 20131031
  Receipt Date: 20131206
  Transmission Date: 20140711
  Serious: Yes (Life-Threatening, Other)
  Sender: FDA-Public Use
  Company Number: DE-OTSUKA-EU-2013-10261

PATIENT
  Age: 72 Year
  Sex: Male
  Weight: 88 kg

DRUGS (6)
  1. PLETAL [Suspect]
     Indication: ARTERIAL OCCLUSIVE DISEASE
     Dosage: 100 MG MILLIGRAM(S), DAILY DOSE
     Route: 065
     Dates: start: 20130419, end: 20130524
  2. PLETAL [Suspect]
     Dosage: 100 MG MILLIGRAM(S), BID
     Route: 048
     Dates: start: 20130525, end: 20130528
  3. ACETYLSALICYLIC ACID [Concomitant]
     Indication: PROPHYLAXIS
     Dosage: 100 MG MILLIGRAM(S), DAILY DOSE
     Route: 048
  4. ATACAND PLUS [Concomitant]
     Indication: HYPERTENSION
     Dosage: 1 DF DOSAGE FORM, DAILY DOSE
     Route: 048
  5. SIMVABETA [Concomitant]
     Indication: HYPERCHOLESTEROLAEMIA
     Dosage: 20 MG MILLIGRAM(S), DAILY DOSE
     Route: 048
  6. ALLOBETA [Concomitant]
     Indication: HYPERURICAEMIA
     Dosage: 300 MG MILLIGRAM(S), BID
     Route: 048

REACTIONS (5)
  - Hypersensitivity [Recovered/Resolved]
  - Paraesthesia [Recovered/Resolved]
  - Swollen tongue [Recovered/Resolved]
  - Erythema [Recovered/Resolved]
  - Skin exfoliation [Recovered/Resolved]
